FAERS Safety Report 14762120 (Version 1)
Quarter: 2018Q2

REPORT INFORMATION
  Report Type: Spontaneous
  Country: US (occurrence: US)
  Receive Date: 20180416
  Receipt Date: 20180416
  Transmission Date: 20180711
  Serious: Yes (Hospitalization, Other)
  Sender: FDA-Public Use
  Company Number: US-009507513-1804USA005370

PATIENT
  Age: 55 Year
  Sex: Female

DRUGS (3)
  1. GLYBURIDE. [Concomitant]
     Active Substance: GLYBURIDE
     Dosage: UNK
  2. JANUVIA [Suspect]
     Active Substance: SITAGLIPTIN PHOSPHATE
     Indication: TYPE 2 DIABETES MELLITUS
     Dosage: UNK
     Route: 048
     Dates: end: 20180410
  3. METFORMIN [Concomitant]
     Active Substance: METFORMIN HYDROCHLORIDE
     Dosage: UNK

REACTIONS (1)
  - Obstructive pancreatitis [Recovered/Resolved]

NARRATIVE: CASE EVENT DATE: 201709
